FAERS Safety Report 13924490 (Version 1)
Quarter: 2017Q3

REPORT INFORMATION
  Report Type: Spontaneous
  Country: GB (occurrence: GB)
  Receive Date: 20170831
  Receipt Date: 20170831
  Transmission Date: 20171127
  Serious: Yes (Hospitalization)
  Sender: FDA-Public Use
  Company Number: GB-ACCORD-057741

PATIENT
  Age: 56 Year
  Sex: Male
  Weight: 77.85 kg

DRUGS (14)
  1. ALLOPURINOL. [Suspect]
     Active Substance: ALLOPURINOL
     Indication: HYPERURICAEMIA
     Route: 048
     Dates: start: 20170706, end: 20170713
  2. ONDANSETRON [Concomitant]
     Active Substance: ONDANSETRON
  3. GLYCERYL TRINITRATE [Concomitant]
     Active Substance: NITROGLYCERIN
  4. TICAGRELOR. [Concomitant]
     Active Substance: TICAGRELOR
  5. SULFAMETHOXAZOLE/TRIMETHOPRIM [Suspect]
     Active Substance: SULFAMETHOXAZOLE\TRIMETHOPRIM
     Indication: INFECTION PROPHYLAXIS
     Route: 048
     Dates: start: 20170707, end: 20170712
  6. ACICLOVIR [Concomitant]
     Active Substance: ACYCLOVIR
  7. ACETYLSALICYLIC ACID [Concomitant]
     Active Substance: ASPIRIN
  8. ATORVASTATIN [Concomitant]
     Active Substance: ATORVASTATIN
  9. FONDAPARINUX/FONDAPARINUX SODIUM [Concomitant]
  10. AMOXICILLIN/CLAVULANATE POTASSIUM [Concomitant]
  11. FLUCONAZOLE. [Concomitant]
     Active Substance: FLUCONAZOLE
  12. BISOPROLOL [Concomitant]
     Active Substance: BISOPROLOL
  13. BENDAMUSTINE [Concomitant]
     Active Substance: BENDAMUSTINE
     Indication: CHRONIC LYMPHOCYTIC LEUKAEMIA
     Route: 042
     Dates: start: 20170706, end: 20170707
  14. RITUXIMAB. [Concomitant]
     Active Substance: RITUXIMAB
     Indication: CHRONIC LYMPHOCYTIC LEUKAEMIA
     Route: 042
     Dates: start: 20170706, end: 20170707

REACTIONS (1)
  - Drug eruption [Recovered/Resolved]

NARRATIVE: CASE EVENT DATE: 20170717
